FAERS Safety Report 9857895 (Version 4)
Quarter: 2014Q1

REPORT INFORMATION
  Report Type: Spontaneous
  Country: FR (occurrence: FR)
  Receive Date: 20140131
  Receipt Date: 20140224
  Transmission Date: 20141002
  Serious: Yes (Hospitalization)
  Sender: FDA-Public Use
  Company Number: FR-ROCHE-1342147

PATIENT
  Age: 70 Year
  Sex: Female
  Weight: 75 kg

DRUGS (1)
  1. PERJETA [Suspect]
     Indication: BREAST CANCER
     Route: 042
     Dates: start: 20140129, end: 20140129

REACTIONS (1)
  - Partial seizures [Recovering/Resolving]
